FAERS Safety Report 4435092-7 (Version None)
Quarter: 2004Q3

REPORT INFORMATION
  Report Type: 
  Country: None (occurrence: None)
  Receive Date: 20040826
  Receipt Date: 20040819
  Transmission Date: 20050211
  Serious: Yes (Hospitalization)
  Sender: FDA-Public Use
  Company Number: 206739

PATIENT
  Age: 75 Year
  Sex: Male
  Weight: 73.5 kg

DRUGS (15)
  1. BEVACIZUMAB (BEVACIZUMAB) PWDR + SOLVENT, INFUSION SOLN, 100MG [Suspect]
     Indication: COLORECTAL CANCER
     Dosage: 5 MG/KG, Q2W, INTRAVENOUS
     Route: 042
     Dates: start: 20040420, end: 20040504
  2. OXALIPLATIN (OXALIPLATIN) [Suspect]
     Indication: COLORECTAL CANCER
     Dosage: 85 MG/M2, Q2W, INTRAVENOUS
     Route: 042
     Dates: start: 20040420, end: 20040504
  3. FLUOROURACIL [Suspect]
     Indication: COLORECTAL CANCER
     Dosage: 500 MG/M2, 1/WEEK, INTRAVENOUS
     Route: 042
     Dates: start: 20040420, end: 20040504
  4. LEUCOVORIN CALCIUM [Suspect]
     Indication: COLORECTAL CANCER
     Dosage: 20 MG/M2, 1/WEEK, INTRAVENOUS
     Route: 042
     Dates: start: 20040420, end: 20040504
  5. LESCOL [Concomitant]
  6. LOTREL (AMLODIPINE BESYLATE, BENAZEPRIL HYDROCHLORIDE) [Concomitant]
  7. KCL (POTASSIUM CHLORIDE) [Concomitant]
  8. RESTORIL [Concomitant]
  9. INSULIN [Concomitant]
  10. CLINDAMYCIN HCL [Concomitant]
  11. COMPAZINE [Concomitant]
  12. FLOMAX [Concomitant]
  13. WARFARIN SODIUM [Concomitant]
  14. GLYBURIDE [Concomitant]
  15. HYZAAR [Concomitant]

REACTIONS (14)
  - ABDOMINAL PAIN [None]
  - ASTHENIA [None]
  - BLOOD AMYLASE DECREASED [None]
  - BLOOD CREATININE INCREASED [None]
  - BLOOD GLUCOSE INCREASED [None]
  - BLOOD POTASSIUM INCREASED [None]
  - BLOOD SODIUM DECREASED [None]
  - BLOOD UREA INCREASED [None]
  - CARDIOMEGALY [None]
  - DIARRHOEA [None]
  - HAEMATOCRIT DECREASED [None]
  - ILEUS [None]
  - TOOTH ABSCESS [None]
  - WHITE BLOOD CELL COUNT DECREASED [None]
